FAERS Safety Report 5572449-5 (Version None)
Quarter: 2007Q4

REPORT INFORMATION
  Report Type: 
  Country: None (occurrence: None)
  Receive Date: 20071222
  Receipt Date: 20071210
  Transmission Date: 20080405
  Serious: Yes (Other)
  Sender: FDA-Public Use
  Company Number: BR-PFIZER INC-2007105894

PATIENT
  Sex: Female

DRUGS (2)
  1. CHANTIX [Suspect]
     Indication: SMOKING CESSATION THERAPY
     Dates: start: 20071203, end: 20071208
  2. RIVOTRIL [Concomitant]
     Indication: INSOMNIA

REACTIONS (3)
  - DIZZINESS [None]
  - DRY MOUTH [None]
  - MEMORY IMPAIRMENT [None]
